FAERS Safety Report 7230456-0 (Version None)
Quarter: 2011Q1

REPORT INFORMATION
  Report Type: 
  Country: None (occurrence: None)
  Receive Date: 20110118
  Receipt Date: 20110112
  Transmission Date: 20110831
  Serious: Yes (Other)
  Sender: FDA-Public Use
  Company Number: TR-BRISTOL-MYERS SQUIBB COMPANY-15480189

PATIENT
  Age: 55 Year
  Sex: Male

DRUGS (9)
  1. SALMETEROL [Concomitant]
  2. GRANULOCYTE CSF [Concomitant]
  3. FLUTICASONE PROPIONATE [Concomitant]
  4. CEFEPIME [Suspect]
     Indication: ACINETOBACTER INFECTION
  5. OMEPRAZOLE [Concomitant]
  6. ACETYLCYSTEINE [Concomitant]
  7. THEOPHYLLINE [Concomitant]
  8. FLUDARABINE PHOSPHATE [Concomitant]
  9. CYCLOPHOSPHAMIDE [Concomitant]

REACTIONS (4)
  - DISORIENTATION [None]
  - SPEECH DISORDER [None]
  - MYOCLONIC EPILEPSY [None]
  - AGGRESSION [None]
